FAERS Safety Report 9317058 (Version 1)
Quarter: 2013Q2

REPORT INFORMATION
  Report Type: Spontaneous
  Country: US (occurrence: US)
  Receive Date: 20130530
  Receipt Date: 20130530
  Transmission Date: 20140414
  Serious: No
  Sender: FDA-Public Use
  Company Number: US-NOVEN-12US004704

PATIENT
  Age: 17 Year
  Sex: Female

DRUGS (2)
  1. DAYTRANA [Suspect]
     Indication: PRODUCT USED FOR UNKNOWN INDICATION
     Dosage: 20 MG, 1 AND 1/2 PATCH DAILY
     Route: 062
     Dates: start: 201205
  2. DAYTRANA [Suspect]
     Dosage: 20 MG, TWO PATCHES DAILY
     Route: 062

REACTIONS (3)
  - Anxiety [Unknown]
  - Wrong technique in drug usage process [Not Recovered/Not Resolved]
  - Drug prescribing error [Not Recovered/Not Resolved]
